FAERS Safety Report 7219240-1 (Version None)
Quarter: 2011Q1

REPORT INFORMATION
  Report Type: 
  Country: None (occurrence: None)
  Receive Date: 20110111
  Receipt Date: 20110103
  Transmission Date: 20110831
  Serious: Yes (Other)
  Sender: FDA-Public Use
  Company Number: US-PFIZER INC-2010072119

PATIENT
  Sex: Female

DRUGS (5)
  1. ABILIFY [Suspect]
     Dosage: UNK
     Dates: end: 20080401
  2. DEPAKOTE [Suspect]
     Dosage: UNK
  3. NEURONTIN [Suspect]
     Dosage: UNK
  4. EFFEXOR XR [Suspect]
     Indication: DEPRESSION
     Dosage: 150 MG, 3X/DAY
     Route: 048
     Dates: end: 20100501
  5. EFFEXOR [Suspect]
     Indication: DEPRESSION
     Dosage: 75 MG, 1X/DAY
     Route: 048
     Dates: start: 20040101

REACTIONS (3)
  - WEIGHT DECREASED [None]
  - TRICHOTILLOMANIA [None]
  - WEIGHT INCREASED [None]
